FAERS Safety Report 20497209 (Version 1)
Quarter: 2022Q1

REPORT INFORMATION
  Report Type: Spontaneous
  Country: US (occurrence: US)
  Receive Date: 20220221
  Receipt Date: 20220221
  Transmission Date: 20220423
  Serious: Yes (Life-Threatening, Other)
  Sender: FDA-Public Use
  Company Number: US-DSPHARMA-2022SUN000614

PATIENT

DRUGS (2)
  1. LATUDA [Suspect]
     Active Substance: LURASIDONE HYDROCHLORIDE
     Dosage: UNK
     Route: 064
  2. TRAZODONE [Concomitant]
     Active Substance: TRAZODONE HYDROCHLORIDE
     Route: 064

REACTIONS (4)
  - Neonatal dyspnoea [Recovered/Resolved]
  - Depressed level of consciousness [Recovered/Resolved]
  - Movement disorder [Recovered/Resolved]
  - Foetal exposure during pregnancy [Unknown]
